FAERS Safety Report 9047404 (Version 1)
Quarter: 2013Q1

REPORT INFORMATION
  Report Type: Report from Study
  Country: US (occurrence: US)
  Receive Date: 20130201
  Receipt Date: 20130201
  Transmission Date: 20140127
  Serious: No
  Sender: FDA-Public Use
  Company Number: US-ABBOTT-12P-163-1026917-00

PATIENT
  Age: 67 Year
  Sex: Male

DRUGS (12)
  1. HUMIRA [Suspect]
     Indication: PSORIATIC ARTHROPATHY
     Dates: start: 20121126
  2. STARLIX [Concomitant]
     Indication: DIABETES MELLITUS
  3. METFORMIN [Concomitant]
     Indication: DIABETES MELLITUS
  4. PRAVASTATIN [Concomitant]
     Indication: BLOOD CHOLESTEROL INCREASED
     Dosage: 40 MG DAILY
  5. LOSARTAN [Concomitant]
     Indication: BLOOD PRESSURE
  6. ACETAMINOPHEN [Concomitant]
     Indication: PRODUCT USED FOR UNKNOWN INDICATION
  7. METHOTREXATE [Concomitant]
     Indication: PSORIASIS
     Dosage: 2.5 MG, 6 TABS WEEKLY
  8. ATENOLOL [Concomitant]
     Indication: BLOOD PRESSURE
     Dosage: 50 MG, 1 IN THE MORNING AND 20 MG, 1 IN THE EVENING
  9. ALLOPURINOL [Concomitant]
     Indication: GOUT
  10. CLOBEX SPRAY [Concomitant]
     Indication: PSORIASIS
  11. OMEGA FISH OIL [Concomitant]
     Indication: PRODUCT USED FOR UNKNOWN INDICATION
     Dosage: 1000 MG DAILY
  12. FOLIC ACID [Concomitant]
     Indication: PSORIASIS
     Dosage: 1 MG, 5 TABS PER WEEK

REACTIONS (1)
  - Cough [Recovering/Resolving]
